FAERS Safety Report 19698382 (Version 2)
Quarter: 2021Q3

REPORT INFORMATION
  Report Type: Spontaneous
  Country: EG (occurrence: EG)
  Receive Date: 20210813
  Receipt Date: 20210818
  Transmission Date: 20211014
  Serious: No
  Sender: FDA-Public Use
  Company Number: EG-PFIZER INC-202100987998

PATIENT
  Age: 34 Year
  Sex: Female

DRUGS (7)
  1. LEVOFLOXACIN. [Suspect]
     Active Substance: LEVOFLOXACIN
     Indication: COVID-19
     Dosage: 500 MG, 1X/DAY
     Dates: start: 202006, end: 2020
  2. VITAMIN C [Concomitant]
     Active Substance: ASCORBIC ACID
     Indication: COVID-19
     Dosage: UNK
     Route: 048
     Dates: start: 202006
  3. ZINC. [Concomitant]
     Active Substance: ZINC
     Indication: COVID-19
     Dosage: UNK
     Route: 048
     Dates: start: 202006
  4. AZITHROMYCIN ANHYDROUS. [Suspect]
     Active Substance: AZITHROMYCIN ANHYDROUS
     Indication: COVID-19
     Dosage: 500 MG
     Route: 048
     Dates: start: 202006, end: 2020
  5. VITAMIN D [VITAMIN D NOS] [Concomitant]
     Active Substance: VITAMIN D NOS
     Indication: COVID-19
     Dosage: UNK
     Route: 048
     Dates: start: 202006
  6. ENOXAPARIN [Concomitant]
     Active Substance: ENOXAPARIN
     Indication: COVID-19
     Dosage: 40 MG, 1X/DAY
     Route: 042
     Dates: start: 202006, end: 2020
  7. FEXOFENADINE HYDROCHLORIDE. [Concomitant]
     Active Substance: FEXOFENADINE HYDROCHLORIDE
     Indication: COVID-19
     Dosage: UNK
     Dates: start: 202006, end: 2020

REACTIONS (1)
  - Off label use [Unknown]

NARRATIVE: CASE EVENT DATE: 2020
